FAERS Safety Report 5170281-8 (Version None)
Quarter: 2006Q4

REPORT INFORMATION
  Report Type: 
  Country: None (occurrence: None)
  Receive Date: 20061204
  Receipt Date: 20061122
  Transmission Date: 20070319
  Serious: Yes (Death, Life-Threatening, Hospitalization)
  Sender: FDA-Public Use
  Company Number: CLOF-10397

PATIENT
  Age: 70 Year

DRUGS (1)
  1. CLOFARABINE [Suspect]
     Indication: ACUTE MYELOID LEUKAEMIA
     Dates: start: 20061018, end: 20061022

REACTIONS (20)
  - AGITATION [None]
  - BLOOD BILIRUBIN INCREASED [None]
  - BLOOD CULTURE POSITIVE [None]
  - BLOOD POTASSIUM INCREASED [None]
  - BLOOD PRESSURE DECREASED [None]
  - BONE MARROW FAILURE [None]
  - CARDIAC FAILURE [None]
  - CONFUSIONAL STATE [None]
  - DIARRHOEA [None]
  - DYSPNOEA [None]
  - EPISTAXIS [None]
  - ESCHERICHIA INFECTION [None]
  - FEBRILE CONVULSION [None]
  - HALLUCINATION [None]
  - HERPES SIMPLEX [None]
  - LIVER FUNCTION TEST ABNORMAL [None]
  - NEUTROPENIC SEPSIS [None]
  - PLEURAL EFFUSION [None]
  - PULMONARY FUNCTION TEST DECREASED [None]
  - RENAL FAILURE [None]
